FAERS Safety Report 9657615 (Version 1)
Quarter: 2013Q4

REPORT INFORMATION
  Report Type: Spontaneous
  Country: IT (occurrence: None)
  Receive Date: 20131029
  Receipt Date: 20131029
  Transmission Date: 20140711
  Serious: Yes (Hospitalization)
  Sender: FDA-Public Use
  Company Number: AUR-APL-2013-08868

PATIENT
  Age: 6 Year
  Sex: Male

DRUGS (5)
  1. AMOXICILLIN + CLAVULANIC ACID [Suspect]
     Indication: RESPIRATORY TRACT INFECTION
     Dosage: UNKNOWN
  2. VENTOLIN (SALBUTAMOL) [Suspect]
     Indication: DYSPNOEA
     Dosage: 100 MCG, 2 SPRAYS 3 TIMES A DAY FOR FOUR DAYS, UNKNOWN
  3. BOOSTRIX [Suspect]
     Indication: PRODUCT USED FOR UNKNOWN INDICATION
  4. BETAMETHASONE (BETAMETHASONE [Concomitant]
  5. FLUTICASONE (FLUTICASONE) [Concomitant]

REACTIONS (2)
  - Stevens-Johnson syndrome [None]
  - Thrombophlebitis [None]
